FAERS Safety Report 6346251-0 (Version None)
Quarter: 2009Q3

REPORT INFORMATION
  Report Type: 
  Country: None (occurrence: None)
  Receive Date: 20090909
  Receipt Date: 20090904
  Transmission Date: 20100115
  Serious: Yes (Death)
  Sender: FDA-Public Use
  Company Number: PHHO2009US10918

PATIENT
  Sex: Male
  Weight: 76 kg

DRUGS (1)
  1. RAD 666 RAD+TAB+PTR [Suspect]
     Dosage: 0.75 MG, BID
     Route: 048
     Dates: start: 20080828

REACTIONS (2)
  - CONCOMITANT DISEASE PROGRESSION [None]
  - SUDDEN DEATH [None]
